FAERS Safety Report 9349458 (Version 2)
Quarter: 2013Q3

REPORT INFORMATION
  Report Type: Spontaneous
  Country: ES (occurrence: IT)
  Receive Date: 20130614
  Receipt Date: 20130702
  Transmission Date: 20140515
  Serious: Yes (Other)
  Sender: FDA-Public Use
  Company Number: IT-FRI-1000045902

PATIENT
  Age: 34 Year
  Sex: Female
  Weight: 60 kg

DRUGS (3)
  1. ACLIDINIUM [Suspect]
     Indication: CHRONIC OBSTRUCTIVE PULMONARY DISEASE
     Dosage: 644 MCG
     Dates: start: 20130521, end: 20130521
  2. SERETIDE DISCUS 50/250 [Concomitant]
     Dosage: 50/250 MG BID
  3. MONTELUKAST [Concomitant]
     Dosage: 10 MG

REACTIONS (1)
  - Laryngeal oedema [Recovered/Resolved]
